FAERS Safety Report 16277737 (Version 1)
Quarter: 2019Q2

REPORT INFORMATION
  Report Type: Spontaneous
  Country: US (occurrence: US)
  Receive Date: 20190506
  Receipt Date: 20190506
  Transmission Date: 20190711
  Serious: Yes (Other)
  Sender: FDA-Public Use
  Company Number: US-PFIZER INC-2019186690

PATIENT
  Age: 56 Year
  Sex: Male
  Weight: 90.72 kg

DRUGS (2)
  1. LYRICA [Suspect]
     Active Substance: PREGABALIN
     Indication: PERONEAL NERVE PALSY
  2. LYRICA [Suspect]
     Active Substance: PREGABALIN
     Indication: NERVE COMPRESSION
     Dosage: 200 MG, 2X/DAY
     Route: 048

REACTIONS (5)
  - Therapeutic product effect incomplete [Unknown]
  - Product dose omission [Unknown]
  - Spinal fracture [Unknown]
  - Intentional product use issue [Unknown]
  - Cervical vertebral fracture [Unknown]
